FAERS Safety Report 21675202 (Version 1)
Quarter: 2022Q4

REPORT INFORMATION
  Report Type: Spontaneous
  Country: US (occurrence: None)
  Receive Date: 20221202
  Receipt Date: 20221202
  Transmission Date: 20230112
  Serious: Yes (Other)
  Sender: FDA-Public Use
  Company Number: None

PATIENT
  Age: 43 Year
  Sex: Female
  Weight: 159.66 kg

DRUGS (2)
  1. MOUNJARO [Suspect]
     Active Substance: TIRZEPATIDE
  2. PAROXETINE [Concomitant]
     Active Substance: PAROXETINE

REACTIONS (2)
  - Diarrhoea [None]
  - Vomiting projectile [None]

NARRATIVE: CASE EVENT DATE: 20221128
